FAERS Safety Report 23359164 (Version 1)
Quarter: 2024Q1

REPORT INFORMATION
  Report Type: Spontaneous
  Country: NP (occurrence: NP)
  Receive Date: 20240102
  Receipt Date: 20240102
  Transmission Date: 20240410
  Serious: Yes (Other)
  Sender: FDA-Public Use
  Company Number: NP-ACERUSPHRM-2023-NP-000001

PATIENT
  Age: 26 Year
  Sex: Male

DRUGS (3)
  1. TESTOSTERONE [Suspect]
     Active Substance: TESTOSTERONE
     Indication: Hypogonadism
     Route: 030
  2. UNSPECIFIED INGREDIENT [Concomitant]
     Active Substance: UNSPECIFIED INGREDIENT
     Indication: Pulmonary embolism
  3. DABIGATRAN [Concomitant]
     Active Substance: DABIGATRAN
     Indication: Pulmonary embolism

REACTIONS (2)
  - Pulmonary embolism [Unknown]
  - Anxiety [Unknown]
